FAERS Safety Report 10449549 (Version 2)
Quarter: 2014Q4

REPORT INFORMATION
  Report Type: Report from Study
  Country: BR (occurrence: BR)
  Receive Date: 20140912
  Receipt Date: 20141016
  Transmission Date: 20150528
  Serious: Yes (Other)
  Sender: FDA-Public Use
  Company Number: BR-SA-2014SA121144

PATIENT
  Age: 43 Year
  Sex: Male

DRUGS (1)
  1. FABRAZYME [Suspect]
     Active Substance: AGALSIDASE BETA
     Indication: FABRY^S DISEASE
     Route: 041
     Dates: start: 20140101

REACTIONS (2)
  - Deafness unilateral [Unknown]
  - Hearing impaired [Unknown]

NARRATIVE: CASE EVENT DATE: 2014
